FAERS Safety Report 7806391-3 (Version None)
Quarter: 2011Q4

REPORT INFORMATION
  Report Type: 
  Country: None (occurrence: None)
  Receive Date: 20111011
  Receipt Date: 20111005
  Transmission Date: 20120403
  Serious: Yes (Hospitalization, Other)
  Sender: FDA-Public Use
  Company Number: FR-PFIZER INC-2011203815

PATIENT
  Age: 85 Year
  Sex: Female

DRUGS (4)
  1. LASIX [Concomitant]
     Indication: OEDEMA PERIPHERAL
     Dosage: 160 MG, 1X/DAY
     Route: 048
     Dates: start: 20110715, end: 20110810
  2. EFFEXOR XR [Suspect]
     Indication: DEPRESSION
     Dosage: 37.5 MG, 1X/DAY
     Route: 048
     Dates: start: 20110514, end: 20110810
  3. PERINDOPRIL [Suspect]
     Indication: HYPERTENSION
     Dosage: 2 MG, 1X/DAY
     Route: 048
     Dates: start: 20110801, end: 20110810
  4. MEMANTINE [Suspect]
     Indication: DEMENTIA ALZHEIMER'S TYPE
     Dosage: 10 MG, 2X/DAY
     Route: 048
     Dates: end: 20110810

REACTIONS (3)
  - PANCREATITIS ACUTE [None]
  - VENTRICULAR EXTRASYSTOLES [None]
  - BUNDLE BRANCH BLOCK RIGHT [None]
